FAERS Safety Report 7503671-6 (Version None)
Quarter: 2011Q2

REPORT INFORMATION
  Report Type: 
  Country: None (occurrence: None)
  Receive Date: 20110518
  Receipt Date: 20110505
  Transmission Date: 20111010
  Serious: Yes (Other)
  Sender: FDA-Public Use
  Company Number: UCM201105-000012

PATIENT
  Age: 73 Year
  Sex: Female

DRUGS (3)
  1. MELOXICAM [Suspect]
     Indication: MUSCLE SPASMS
  2. QUININE SULFATE [Suspect]
     Dosage: (300 MG DAILY)
  3. ROFECOXIB [Suspect]

REACTIONS (2)
  - HAEMATOMA [None]
  - THROMBOCYTOPENIA [None]
